FAERS Safety Report 10019819 (Version 1)
Quarter: 2014Q1

REPORT INFORMATION
  Report Type: Spontaneous
  Country: US (occurrence: US)
  Receive Date: 20140318
  Receipt Date: 20140318
  Transmission Date: 20141002
  Serious: No
  Sender: FDA-Public Use
  Company Number: US-GALDERMA-US13004163

PATIENT
  Age: 65 Year
  Sex: Male

DRUGS (3)
  1. MIRVASO (BRIMONIDINE) TOPICAL GEL, 0.33% [Suspect]
     Indication: ROSACEA
     Dosage: 0.33%
     Route: 061
     Dates: start: 20131210, end: 20131210
  2. SODIUM SULFACETAMIDE CLEANSER [Concomitant]
     Dosage: 10%
     Route: 061
     Dates: start: 20131210
  3. METROGEL  (METRONIDAZOLE) GEL, 1% [Concomitant]
     Dosage: 1%
     Route: 061
     Dates: start: 20120315

REACTIONS (3)
  - Telangiectasia [Recovered/Resolved]
  - Headache [Recovered/Resolved]
  - Drug ineffective [Recovered/Resolved]
